FAERS Safety Report 5888817-8 (Version None)
Quarter: 2008Q3

REPORT INFORMATION
  Report Type: 
  Country: None (occurrence: None)
  Receive Date: 20080919
  Receipt Date: 20080909
  Transmission Date: 20090109
  Serious: Yes (Other)
  Sender: FDA-Public Use
  Company Number: BR-JNJFOC-20080902545

PATIENT
  Age: 28 Year
  Sex: Female
  Weight: 78 kg

DRUGS (3)
  1. ACETAMINOPHEN W/ CODEINE [Suspect]
     Indication: TOOTHACHE
     Dosage: 500MG/30MG
     Route: 048
  2. DICLOFENAC [Concomitant]
     Indication: TOOTHACHE
     Route: 048
  3. DIPYRONE [Concomitant]
     Indication: TOOTHACHE
     Route: 048

REACTIONS (4)
  - DYSPNOEA [None]
  - HEADACHE [None]
  - MUSCULAR WEAKNESS [None]
  - TACHYCARDIA [None]
